FAERS Safety Report 10175892 (Version 1)
Quarter: 2014Q2

REPORT INFORMATION
  Report Type: Spontaneous
  Country: US (occurrence: None)
  Receive Date: 20140415
  Receipt Date: 20140415
  Transmission Date: 20141212
  Serious: Yes (Hospitalization)
  Sender: FDA-Public Use
  Company Number: ALL1-2013-04785

PATIENT
  Age: 23 Year
  Sex: Male

DRUGS (1)
  1. LIALDA [Suspect]
     Indication: COLITIS
     Dosage: 2.4G 1X/DAY:QD, ORAL
     Route: 048
     Dates: start: 20130415, end: 20130510

REACTIONS (3)
  - Myocarditis [None]
  - Pancreatitis [None]
  - Colitis [None]
